FAERS Safety Report 7335322-8 (Version None)
Quarter: 2011Q1

REPORT INFORMATION
  Report Type: 
  Country: None (occurrence: None)
  Receive Date: 20110307
  Receipt Date: 20110222
  Transmission Date: 20110831
  Serious: Yes (Other)
  Sender: FDA-Public Use
  Company Number: PHHY2011TW13288

PATIENT
  Sex: Female
  Weight: 80 kg

DRUGS (18)
  1. DICLOFENAC POTASSIUM [Concomitant]
     Dosage: 75 MG, TID
     Route: 048
     Dates: start: 20110131, end: 20110206
  2. DICLOFENAC POTASSIUM [Concomitant]
     Indication: ANALGESIC THERAPY
     Dosage: 75 MG, TID
     Route: 048
     Dates: start: 20110108, end: 20110111
  3. AUGMENTIN '125' [Concomitant]
     Dosage: 2 G, Q12H
     Route: 048
     Dates: start: 20110211, end: 20110217
  4. ZOLEDRONATE [Suspect]
     Indication: METASTASES TO BONE
     Dosage: 4 MG, QW4
     Route: 042
     Dates: start: 20090811, end: 20101220
  5. NEFOPAM [Concomitant]
     Indication: ANALGESIC THERAPY
     Dosage: 90 MG, TID
     Dates: start: 20101222, end: 20101225
  6. AUGMENTIN '125' [Concomitant]
     Dosage: 2 G, Q12H
     Route: 048
     Dates: start: 20110221, end: 20110227
  7. AMOXICILLIN [Concomitant]
     Indication: INFECTION
     Dosage: 750 MG, Q8H
     Route: 048
     Dates: start: 20101222, end: 20101225
  8. DICLOFENAC POTASSIUM [Concomitant]
     Dosage: 75 MG, TID
     Route: 048
     Dates: start: 20110211, end: 20110213
  9. AUGMENTIN '125' [Concomitant]
     Indication: CELLULITIS
     Dosage: 2 G, Q12H
     Route: 048
     Dates: start: 20110108, end: 20110111
  10. SERRATIOPEPTIDASE [Concomitant]
     Dosage: 15 MG, TID
     Route: 048
     Dates: start: 20110211, end: 20110217
  11. PENICILLIN G [Concomitant]
     Indication: CELLULITIS
     Dosage: 3 MIU, STAT
     Route: 042
     Dates: start: 20110108, end: 20110108
  12. DICLOFENAC POTASSIUM [Concomitant]
     Dosage: 75 MG, TID
     Route: 048
     Dates: start: 20110221, end: 20110223
  13. SERRATIOPEPTIDASE [Concomitant]
     Indication: CELLULITIS
     Dosage: 15 MG, TID
     Route: 048
     Dates: start: 20110131, end: 20110206
  14. SERRATIOPEPTIDASE [Concomitant]
     Dosage: 15 MG, TID
     Route: 048
     Dates: start: 20110221, end: 20110227
  15. ZOLEDRONATE [Suspect]
     Indication: NEOPLASM MALIGNANT
     Dosage: 4 MG, QW4
     Dates: start: 20101220
  16. GENTAMICIN [Concomitant]
     Indication: CELLULITIS
     Dosage: 80 MG, STAT
     Route: 042
     Dates: start: 20110108, end: 20110108
  17. KETOROLAC [Concomitant]
     Indication: ANALGESIC THERAPY
     Dosage: 15 MG, STAT
     Route: 042
     Dates: start: 20110108, end: 20110108
  18. AUGMENTIN '125' [Concomitant]
     Dosage: 2 G, Q12H
     Route: 048
     Dates: start: 20110131, end: 20110206

REACTIONS (9)
  - GINGIVITIS [None]
  - OSTEOMYELITIS [None]
  - SOFT TISSUE INFECTION [None]
  - CELLULITIS [None]
  - PAIN IN JAW [None]
  - OSTEONECROSIS OF JAW [None]
  - GINGIVAL BLEEDING [None]
  - GINGIVAL ERYTHEMA [None]
  - DENTAL PLAQUE [None]
